FAERS Safety Report 17798933 (Version 1)
Quarter: 2020Q2

REPORT INFORMATION
  Report Type: Spontaneous
  Country: US (occurrence: US)
  Receive Date: 20200518
  Receipt Date: 20200518
  Transmission Date: 20200714
  Serious: Yes (Other)
  Sender: FDA-Public Use
  Company Number: US-PFIZER INC-2020193664

PATIENT
  Age: 70 Year
  Sex: Female

DRUGS (1)
  1. PREMARIN [Suspect]
     Active Substance: ESTROGENS, CONJUGATED
     Dosage: 1 G (1GM EVERY 3 DAYS)

REACTIONS (6)
  - Intentional product use issue [Unknown]
  - Polymyalgia rheumatica [Unknown]
  - Limb injury [Unknown]
  - Chondrocalcinosis pyrophosphate [Unknown]
  - Breast cancer recurrent [Unknown]
  - Contraindicated product administered [Unknown]
